FAERS Safety Report 5735646-1 (Version None)
Quarter: 2008Q2

REPORT INFORMATION
  Report Type: 
  Country: None (occurrence: None)
  Receive Date: 20080512
  Receipt Date: 20080430
  Transmission Date: 20081010
  Serious: Yes (Other)
  Sender: FDA-Public Use
  Company Number: GB-PFIZER INC-2008038609

PATIENT
  Age: 47 Year
  Sex: Female

DRUGS (3)
  1. CHANTIX [Suspect]
     Indication: SMOKING CESSATION THERAPY
     Route: 048
     Dates: start: 20080117, end: 20080401
  2. AMOXICILLIN [Concomitant]
     Route: 048
  3. CIMICIFUGA [Concomitant]

REACTIONS (5)
  - AMNESIA [None]
  - DECREASED INTEREST [None]
  - DEPRESSED MOOD [None]
  - DISTURBANCE IN ATTENTION [None]
  - SELF-INJURIOUS IDEATION [None]
